FAERS Safety Report 18599960 (Version 1)
Quarter: 2020Q4

REPORT INFORMATION
  Report Type: Spontaneous
  Country: US (occurrence: US)
  Receive Date: 20201209
  Receipt Date: 20201209
  Transmission Date: 20210114
  Serious: Yes (Death, Life-Threatening, Hospitalization, Other)
  Sender: FDA-Public Use
  Company Number: None

PATIENT
  Sex: Male
  Weight: 83 kg

DRUGS (1)
  1. YESCARTA [Suspect]
     Active Substance: AXICABTAGENE CILOLEUCEL
     Indication: DIFFUSE LARGE B-CELL LYMPHOMA
     Route: 042
     Dates: start: 20201109, end: 20201109

REACTIONS (10)
  - Neurotoxicity [None]
  - Bacteraemia [None]
  - Ascites [None]
  - Acute kidney injury [None]
  - Cytokine release syndrome [None]
  - Atrial fibrillation [None]
  - Bacterial infection [None]
  - Pain [None]
  - Refusal of treatment by patient [None]
  - Multiple organ dysfunction syndrome [None]
